FAERS Safety Report 16533646 (Version 1)
Quarter: 2019Q3

REPORT INFORMATION
  Report Type: Report from Study
  Country: US (occurrence: US)
  Receive Date: 20190705
  Receipt Date: 20190705
  Transmission Date: 20191004
  Serious: Yes (Hospitalization, Other)
  Sender: FDA-Public Use
  Company Number: US-BRISTOL-MYERS SQUIBB COMPANY-BMS-2019-064482

PATIENT
  Age: 63 Year
  Sex: Male
  Weight: 77 kg

DRUGS (3)
  1. NIVOLUMAB [Suspect]
     Active Substance: NIVOLUMAB
     Indication: GLIOMA
     Dosage: 240 MILLIGRAM
     Route: 065
     Dates: start: 20190624
  2. AGLATIMAGENE BESADENOVEC [Suspect]
     Active Substance: AGLATIMAGENE BESADENOVEC
     Indication: GLIOMA
     Dosage: 1 MILLILITER
     Route: 065
     Dates: start: 20190327, end: 20190327
  3. VALACICLOVIR [Suspect]
     Active Substance: VALACYCLOVIR HYDROCHLORIDE
     Indication: GLIOMA
     Dosage: 84 GRAM
     Route: 065
     Dates: start: 20190329, end: 20190411

REACTIONS (3)
  - Meningitis aseptic [Not Recovered/Not Resolved]
  - Hypocalcaemia [Unknown]
  - Hyperglycaemia [Unknown]

NARRATIVE: CASE EVENT DATE: 20190626
